FAERS Safety Report 4313703-4 (Version None)
Quarter: 2004Q1

REPORT INFORMATION
  Report Type: 
  Country: None (occurrence: None)
  Receive Date: 20040302
  Receipt Date: 20040122
  Transmission Date: 20041129
  Serious: No
  Sender: FDA-Public Use
  Company Number: 701533

PATIENT
  Age: 68 Year
  Sex: Female

DRUGS (3)
  1. AMEVIVE [Suspect]
     Indication: PSORIASIS
     Dosage: 15 MG QW IM
     Route: 030
     Dates: start: 20031216
  2. DIOVAN [Concomitant]
  3. MULTIVITAMIN [Concomitant]

REACTIONS (1)
  - SKIN PAPILLOMA [None]
